FAERS Safety Report 4308316-4 (Version None)
Quarter: 2004Q1

REPORT INFORMATION
  Report Type: 
  Country: None (occurrence: None)
  Receive Date: 20040301
  Receipt Date: 20031211
  Transmission Date: 20041129
  Serious: No
  Sender: FDA-Public Use
  Company Number: US-BRISTOL-MYERS SQUIBB COMPANY-12456935

PATIENT
  Age: 67 Year
  Sex: Male

DRUGS (7)
  1. GLUCOPHAGE [Suspect]
     Indication: DIABETES MELLITUS
     Route: 048
  2. ACCUPRIL [Concomitant]
  3. NIASPAN [Concomitant]
  4. LIPITOR [Concomitant]
  5. ASPIRIN [Concomitant]
  6. AVANDIA [Concomitant]
  7. NORVASC [Concomitant]

REACTIONS (1)
  - DYSGEUSIA [None]
